FAERS Safety Report 4704982-X (Version None)
Quarter: 2005Q2

REPORT INFORMATION
  Report Type: 
  Country: None (occurrence: None)
  Receive Date: 20050629
  Receipt Date: 20050629
  Transmission Date: 20051028
  Serious: Yes (Other)
  Sender: FDA-Public Use
  Company Number: None

PATIENT
  Sex: Female
  Weight: 36.2878 kg

DRUGS (2)
  1. SINGULAIR [Suspect]
     Indication: ASTHMA
     Dosage: 1 TAB BY MOUTH AT NIGHT
     Dates: start: 20050501, end: 20050616
  2. Z-PAK [Concomitant]

REACTIONS (1)
  - ALOPECIA [None]
